FAERS Safety Report 12447382 (Version 2)
Quarter: 2016Q3

REPORT INFORMATION
  Report Type: Spontaneous
  Country: JP (occurrence: JP)
  Receive Date: 20160608
  Receipt Date: 20160902
  Transmission Date: 20161109
  Serious: Yes (Other)
  Sender: FDA-Public Use
  Company Number: JP-PFIZER INC-2016174808

PATIENT
  Age: 76 Year
  Sex: Female
  Weight: 43.1 kg

DRUGS (9)
  1. CADUET [Suspect]
     Active Substance: AMLODIPINE BESYLATE\ATORVASTATIN CALCIUM
     Dosage: UNK
  2. LYRICA [Suspect]
     Active Substance: PREGABALIN
     Indication: PAIN IN EXTREMITY
     Dosage: 25 MG, 1X/DAY BEFORE BEDTIME
     Route: 048
     Dates: start: 20160314, end: 20160314
  3. THYRADIN-S [Suspect]
     Active Substance: LEVOTHYROXINE
     Dosage: UNK
  4. LYRICA [Suspect]
     Active Substance: PREGABALIN
     Indication: PARAESTHESIA
     Dosage: 25 MG, 1X/DAY BEFORE BEDTIME
     Route: 048
     Dates: start: 20150914, end: 20150925
  5. PRIMPERAN [Suspect]
     Active Substance: METOCLOPRAMIDE HYDROCHLORIDE
     Dosage: UNK, ONCE DAILY
     Route: 048
     Dates: start: 20160314, end: 20160314
  6. PRIMPERAN [Suspect]
     Active Substance: METOCLOPRAMIDE HYDROCHLORIDE
     Indication: PROPHYLAXIS
     Dosage: UNK, ONCE DAILY
     Route: 048
     Dates: start: 20150914, end: 20150925
  7. DIOVAN [Suspect]
     Active Substance: VALSARTAN
     Dosage: UNK
  8. PLAVIX [Suspect]
     Active Substance: CLOPIDOGREL BISULFATE
     Dosage: UNK
  9. LYRICA [Suspect]
     Active Substance: PREGABALIN
     Indication: CERVICAL RADICULOPATHY

REACTIONS (3)
  - Bradycardia [Recovered/Resolved]
  - Feeling cold [Recovered/Resolved]
  - Body temperature decreased [Recovered/Resolved]

NARRATIVE: CASE EVENT DATE: 20160314
